FAERS Safety Report 10413622 (Version 1)
Quarter: 2014Q3

REPORT INFORMATION
  Report Type: Spontaneous
  Country: IN (occurrence: None)
  Receive Date: 20140825
  Receipt Date: 20140825
  Transmission Date: 20150326
  Serious: Yes (Other)
  Sender: FDA-Public Use
  Company Number: AUR-APL-2014-08894

PATIENT
  Sex: Female

DRUGS (1)
  1. DIVALPROEX (VALPROATE) UNKNOWN, UNKNOWN [Suspect]
     Active Substance: DIVALPROEX SODIUM
     Indication: JUVENILE MYOCLONIC EPILEPSY

REACTIONS (1)
  - Demyelination [None]
